FAERS Safety Report 10493742 (Version 1)
Quarter: 2014Q4

REPORT INFORMATION
  Report Type: Spontaneous
  Country: US (occurrence: US)
  Receive Date: 20141002
  Receipt Date: 20141002
  Transmission Date: 20150528
  Serious: No
  Sender: FDA-Public Use
  Company Number: US-GILEAD-2014-0116595

PATIENT
  Age: 47 Year
  Sex: Male

DRUGS (6)
  1. SOVALDI [Suspect]
     Active Substance: SOFOSBUVIR
     Indication: CHRONIC HEPATITIS C
     Dosage: UNK
     Route: 065
  2. NEUPOGEN [Concomitant]
     Active Substance: FILGRASTIM
  3. INTERFERON NOS [Suspect]
     Active Substance: INTERFERON
     Dosage: 180 ?G, UNK
     Route: 065
  4. RIBAVIRIN. [Suspect]
     Active Substance: RIBAVIRIN
     Indication: CHRONIC HEPATITIS C
     Dosage: UNK
     Route: 065
  5. INTERFERON NOS [Suspect]
     Active Substance: INTERFERON
     Indication: CHRONIC HEPATITIS C
     Dosage: 90 ?G, UNK
  6. INTERFERON NOS [Suspect]
     Active Substance: INTERFERON
     Dosage: 135 ?G, UNK

REACTIONS (1)
  - Cough [Not Recovered/Not Resolved]
